FAERS Safety Report 4637659-X (Version None)
Quarter: 2005Q2

REPORT INFORMATION
  Report Type: 
  Country: None (occurrence: None)
  Receive Date: 20050418
  Receipt Date: 20050407
  Transmission Date: 20051028
  Serious: Yes (Hospitalization)
  Sender: FDA-Public Use
  Company Number: CH-GLAXOSMITHKLINE-B0378069A

PATIENT
  Age: 26 Year
  Sex: Female

DRUGS (7)
  1. 3TC [Suspect]
     Dosage: 150MG TWICE PER DAY
     Route: 048
     Dates: end: 20050210
  2. ZERIT [Suspect]
     Dosage: 30MG TWICE PER DAY
     Route: 048
     Dates: start: 20050101
  3. VIREAD [Suspect]
     Dosage: 136MG PER DAY
     Route: 048
     Dates: start: 20050101, end: 20050210
  4. ANTRA [Concomitant]
     Indication: DRUG USE FOR UNKNOWN INDICATION
     Dosage: 40MG PER DAY
     Route: 048
  5. FRAXIPARINE [Concomitant]
     Indication: DRUG USE FOR UNKNOWN INDICATION
     Dosage: .4ML PER DAY
     Route: 058
  6. ZOFRAN [Concomitant]
     Indication: DRUG USE FOR UNKNOWN INDICATION
     Dosage: 4MG TWICE PER DAY
     Route: 048
  7. KALETRA [Concomitant]
     Route: 048

REACTIONS (11)
  - ABASIA [None]
  - ABDOMINAL PAIN [None]
  - ABDOMINAL PAIN UPPER [None]
  - DYSSTASIA [None]
  - FALL [None]
  - FATIGUE [None]
  - GUILLAIN-BARRE SYNDROME [None]
  - PARAESTHESIA [None]
  - QUADRIPARESIS [None]
  - SENSORY DISTURBANCE [None]
  - SKIN LESION [None]
